FAERS Safety Report 19352946 (Version 2)
Quarter: 2021Q3

REPORT INFORMATION
  Report Type: Spontaneous
  Country: AR (occurrence: AR)
  Receive Date: 20210531
  Receipt Date: 20210701
  Transmission Date: 20211014
  Serious: Yes (Disabling)
  Sender: FDA-Public Use
  Company Number: AR-PFIZER INC-2021567476

PATIENT
  Age: 74 Year
  Sex: Male

DRUGS (2)
  1. SUTENT [Suspect]
     Active Substance: SUNITINIB MALATE
     Indication: METASTATIC RENAL CELL CARCINOMA
     Dosage: 37.5 MG, CYCLIC (TOTAL DOSE 37.5 MG, DOSE FORM 12.5 MG, CYCLIC (DAILY, NO REST))
     Dates: start: 20210106
  2. SUTENT [Suspect]
     Active Substance: SUNITINIB MALATE
     Indication: ADJUVANT THERAPY
     Dosage: 37.5 MG, CYCLIC TOTAL DOSE 37.5 MG, DOSE FORM 25 MG, CYCLIC (DAILY, NO REST))
     Dates: start: 20210106, end: 202106

REACTIONS (17)
  - Alopecia [Unknown]
  - Oesophageal discomfort [Unknown]
  - Malaise [Unknown]
  - Pain in extremity [Unknown]
  - Skin discolouration [Unknown]
  - Product use issue [Unknown]
  - General physical health deterioration [Unknown]
  - Dysstasia [Unknown]
  - Weight decreased [Unknown]
  - Blister [Unknown]
  - Feeling abnormal [Unknown]
  - Life expectancy shortened [Unknown]
  - Gait inability [Unknown]
  - Anxiety [Unknown]
  - Pain [Unknown]
  - Condition aggravated [Unknown]
  - Off label use [Unknown]

NARRATIVE: CASE EVENT DATE: 2021
